FAERS Safety Report 21758201 (Version 2)
Quarter: 2023Q1

REPORT INFORMATION
  Report Type: Report from Study
  Country: US (occurrence: US)
  Receive Date: 20221221
  Receipt Date: 20230130
  Transmission Date: 20230417
  Serious: No
  Sender: FDA-Public Use
  Company Number: US-ABBVIE-4244112

PATIENT
  Sex: Female

DRUGS (2)
  1. VENCLEXTA [Suspect]
     Active Substance: VENETOCLAX
     Indication: Acute myeloid leukaemia
     Dosage: TAKE 1 TABLET DAILY WITH FOOD + WATER AND TITRATE UP TO 4 TABLETS DAILY AS TOLERATED + DIRECTED?F...
     Route: 048
  2. VENCLEXTA [Suspect]
     Active Substance: VENETOCLAX
     Indication: Acute myeloid leukaemia
     Dosage: 2 TABLETS FOR A WEEK FOR A MONTH
     Route: 048

REACTIONS (2)
  - Nausea [Unknown]
  - Fatigue [Unknown]
